FAERS Safety Report 4313993-8 (Version None)
Quarter: 2004Q1

REPORT INFORMATION
  Report Type: 
  Country: None (occurrence: None)
  Receive Date: 20040309
  Receipt Date: 20040226
  Transmission Date: 20041129
  Serious: Yes (Hospitalization)
  Sender: FDA-Public Use
  Company Number: PHBS2004FR02663

PATIENT
  Age: 67 Year
  Sex: Male

DRUGS (4)
  1. CARTEOLOL HCL [Suspect]
     Indication: OPEN ANGLE GLAUCOMA
     Dosage: 2 GTT, BID
     Dates: start: 19990910
  2. NEOTROPHINE [Suspect]
     Indication: DEMENTIA ALZHEIMER'S TYPE
     Dosage: 100 MG, QD
     Route: 048
     Dates: start: 20001003, end: 20001105
  3. AMAREL [Concomitant]
     Dates: start: 20000905
  4. TAREG [Concomitant]
     Dosage: UNK, UNK
     Dates: start: 20000710

REACTIONS (2)
  - ATRIAL FIBRILLATION [None]
  - CARDIOVERSION [None]
